FAERS Safety Report 23091110 (Version 3)
Quarter: 2023Q4

REPORT INFORMATION
  Report Type: Spontaneous
  Country: US (occurrence: US)
  Receive Date: 20231020
  Receipt Date: 20231130
  Transmission Date: 20240109
  Serious: Yes (Other)
  Sender: FDA-Public Use
  Company Number: US-Covis Pharma GmbH-2023COV01724

PATIENT
  Age: 51 Year
  Sex: Male
  Weight: 75.6 kg

DRUGS (5)
  1. RILUZOLE [Suspect]
     Active Substance: RILUZOLE
     Indication: Amyotrophic lateral sclerosis
     Route: 065
     Dates: start: 20220401, end: 20230930
  2. ODITRASERTIB [Suspect]
     Active Substance: ODITRASERTIB
     Indication: Amyotrophic lateral sclerosis
     Route: 048
     Dates: start: 20230607, end: 20230929
  3. ODITRASERTIB [Suspect]
     Active Substance: ODITRASERTIB
     Dates: start: 20230906, end: 20230929
  4. SYNTHROID [Concomitant]
     Active Substance: LEVOTHYROXINE SODIUM
     Indication: Autoimmune thyroiditis
     Dates: start: 201706
  5. MAGNESIUM CITRATE [Concomitant]
     Active Substance: MAGNESIUM CITRATE
     Indication: Constipation
     Dates: start: 20230912, end: 20230930

REACTIONS (1)
  - Hepatic enzyme increased [Recovered/Resolved]

NARRATIVE: CASE EVENT DATE: 20230929
